FAERS Safety Report 24571033 (Version 1)
Quarter: 2024Q4

REPORT INFORMATION
  Report Type: Spontaneous
  Country: DE (occurrence: DE)
  Receive Date: 20241101
  Receipt Date: 20241101
  Transmission Date: 20250114
  Serious: Yes (Hospitalization, Other)
  Sender: AZURITY PHARMACEUTICALS
  Company Number: DE-AZURITY PHARMACEUTICALS, INC.-AZR202410-000966

PATIENT
  Sex: Male

DRUGS (1)
  1. TRIPTORELIN [Suspect]
     Active Substance: TRIPTORELIN
     Indication: Prostate cancer
     Dosage: 11.25 MILLIGRAM(S)
     Route: 065

REACTIONS (2)
  - Pulmonary embolism [Unknown]
  - Feeling abnormal [Unknown]
